FAERS Safety Report 7965301-9 (Version None)
Quarter: 2011Q4

REPORT INFORMATION
  Report Type: 
  Country: None (occurrence: None)
  Receive Date: 20111208
  Receipt Date: 20111129
  Transmission Date: 20120403
  Serious: Yes (Hospitalization)
  Sender: FDA-Public Use
  Company Number: US-BAYER-2011-032098

PATIENT
  Age: 21 Year
  Sex: Female
  Weight: 57.596 kg

DRUGS (1)
  1. YASMIN [Suspect]
     Indication: CONTRACEPTION
     Dosage: UNK, QD
     Route: 048
     Dates: start: 20050501, end: 20080701

REACTIONS (1)
  - DEEP VEIN THROMBOSIS [None]
